FAERS Safety Report 10055884 (Version 2)
Quarter: 2014Q2

REPORT INFORMATION
  Report Type: Spontaneous
  Country: CA (occurrence: CA)
  Receive Date: 20140403
  Receipt Date: 20140403
  Transmission Date: 20141212
  Serious: Yes (Other)
  Sender: FDA-Public Use
  Company Number: CA-JNJFOC-20120511336

PATIENT
  Sex: Male
  Weight: 56.2 kg

DRUGS (2)
  1. REMICADE [Suspect]
     Indication: CROHN^S DISEASE
     Route: 042
     Dates: start: 20100604
  2. CORTISONE [Concomitant]
     Route: 065

REACTIONS (3)
  - Uveitis [Unknown]
  - Erythema [Unknown]
  - Gastroenteritis [Unknown]
